FAERS Safety Report 6432179-4 (Version None)
Quarter: 2009Q4

REPORT INFORMATION
  Report Type: 
  Country: None (occurrence: None)
  Receive Date: 20091109
  Receipt Date: 20091105
  Transmission Date: 20100525
  Serious: Yes (Other)
  Sender: FDA-Public Use
  Company Number: CH-BRISTOL-MYERS SQUIBB COMPANY-14845069

PATIENT
  Age: 32 Year
  Sex: Female

DRUGS (2)
  1. BUSPAR [Suspect]
     Dates: start: 20080320, end: 20080320
  2. REGENON [Suspect]
     Dates: start: 20080215, end: 20080301

REACTIONS (2)
  - ABORTION INDUCED [None]
  - PREGNANCY [None]
